FAERS Safety Report 9433453 (Version 3)
Quarter: 2014Q3

REPORT INFORMATION
  Report Type: Spontaneous
  Country: US (occurrence: US)
  Receive Date: 20130731
  Receipt Date: 20140716
  Transmission Date: 20150326
  Serious: Yes (Hospitalization, Other)
  Sender: FDA-Public Use
  Company Number: US-009507513-1307USA017063

PATIENT
  Sex: Female

DRUGS (4)
  1. PREDNISONE. [Concomitant]
     Active Substance: PREDNISONE
     Indication: PRODUCT USED FOR UNKNOWN INDICATION
     Dosage: UNK
     Route: 048
     Dates: start: 201106
  2. PLAQUENIL [Concomitant]
     Active Substance: HYDROXYCHLOROQUINE SULFATE
     Indication: SYSTEMIC LUPUS ERYTHEMATOSUS
     Dosage: 200 MG, QD
     Dates: start: 201007
  3. NUVARING [Suspect]
     Active Substance: ETHINYL ESTRADIOL\ETONOGESTREL
     Indication: MENORRHAGIA
  4. NUVARING [Suspect]
     Active Substance: ETHINYL ESTRADIOL\ETONOGESTREL
     Indication: CONTRACEPTION
     Dosage: UNK
     Route: 067
     Dates: start: 20110105, end: 201107

REACTIONS (13)
  - Acute cutaneous lupus erythematosus [Unknown]
  - Pulmonary embolism [Unknown]
  - Uterine dilation and curettage [Unknown]
  - Gastric bypass [Unknown]
  - Chest pain [Unknown]
  - Menometrorrhagia [Unknown]
  - Bronchitis [Recovered/Resolved]
  - Coagulopathy [Unknown]
  - Uterine dilation and curettage [Unknown]
  - Endometrial ablation [Unknown]
  - Cholecystectomy [Unknown]
  - Off label use [Unknown]
  - Exposure to communicable disease [Unknown]

NARRATIVE: CASE EVENT DATE: 201102
